FAERS Safety Report 6343352-8 (Version None)
Quarter: 2009Q3

REPORT INFORMATION
  Report Type: 
  Country: None (occurrence: None)
  Receive Date: 20090908
  Receipt Date: 20090828
  Transmission Date: 20100115
  Serious: Yes (Hospitalization, Other)
  Sender: FDA-Public Use
  Company Number: PHHY2009JP35128

PATIENT
  Age: 63 Year
  Sex: Male

DRUGS (9)
  1. NEORAL [Suspect]
     Indication: PUSTULAR PSORIASIS
     Dosage: 100-150 MG DAILY
     Route: 048
     Dates: start: 20060101
  2. NEORAL [Suspect]
     Dosage: 250 MG DAILY
     Route: 048
  3. NEORAL [Suspect]
     Dosage: 200 MG DAILY
     Route: 048
  4. NEORAL [Suspect]
     Dosage: 275 MG DAILY
     Route: 048
  5. NEORAL [Suspect]
     Dosage: 200 MG DAILY
     Route: 048
  6. NEORAL [Suspect]
     Dosage: 150 MG DAILY
     Route: 048
  7. NEORAL [Suspect]
     Dosage: 150 MG DAILY
     Route: 048
  8. STEROIDS NOS [Concomitant]
     Indication: PUSTULAR PSORIASIS
     Route: 061
  9. VITAMIN D3 [Concomitant]
     Indication: PUSTULAR PSORIASIS
     Route: 061

REACTIONS (10)
  - DRUG LEVEL INCREASED [None]
  - GINGIVAL HYPERPLASIA [None]
  - NAIL DYSTROPHY [None]
  - NASOPHARYNGITIS [None]
  - NEPHROPATHY TOXIC [None]
  - PSORIASIS [None]
  - PUSTULAR PSORIASIS [None]
  - RENAL DISORDER [None]
  - RENAL IMPAIRMENT [None]
  - SKIN EXFOLIATION [None]
